FAERS Safety Report 25397032 (Version 1)
Quarter: 2025Q2

REPORT INFORMATION
  Report Type: Spontaneous
  Country: US (occurrence: None)
  Receive Date: 20250603
  Receipt Date: 20250603
  Transmission Date: 20250717
  Serious: No
  Sender: FDA-CTU
  Company Number: None

PATIENT
  Age: 70 Year
  Sex: Male
  Weight: 65 kg

DRUGS (1)
  1. ROSUVASTATIN CALCIUM [Suspect]
     Active Substance: ROSUVASTATIN CALCIUM
     Indication: Hyperlipidaemia
     Dosage: FREQUENCY : DAILY;?
     Route: 048
     Dates: start: 20160815

REACTIONS (6)
  - Rhabdomyolysis [None]
  - Acute kidney injury [None]
  - Liver function test increased [None]
  - Blood creatinine increased [None]
  - Blood creatine phosphokinase increased [None]
  - Alcohol use [None]

NARRATIVE: CASE EVENT DATE: 20250302
